FAERS Safety Report 9596218 (Version 1)
Quarter: 2013Q4

REPORT INFORMATION
  Report Type: Spontaneous
  Country: US (occurrence: US)
  Receive Date: 20131004
  Receipt Date: 20131004
  Transmission Date: 20140711
  Serious: No
  Sender: FDA-Public Use
  Company Number: US-BAYER-2013-119798

PATIENT
  Age: 49 Year
  Sex: Female

DRUGS (1)
  1. GADAVIST [Suspect]
     Dosage: UNK
     Route: 042
     Dates: start: 20131001, end: 20131001

REACTIONS (5)
  - Abdominal pain upper [Recovered/Resolved]
  - Diarrhoea [Recovered/Resolved]
  - Pain [Recovered/Resolved]
  - Fatigue [None]
  - Vomiting [Recovered/Resolved]
